FAERS Safety Report 8015368-7 (Version None)
Quarter: 2011Q4

REPORT INFORMATION
  Report Type: 
  Country: None (occurrence: None)
  Receive Date: 20111230
  Receipt Date: 20111220
  Transmission Date: 20120403
  Serious: Yes (Hospitalization, Other)
  Sender: FDA-Public Use
  Company Number: US-ELI_LILLY_AND_COMPANY-US201111006446

PATIENT
  Sex: Female

DRUGS (2)
  1. FORTEO [Suspect]
     Indication: OSTEOPOROSIS POSTMENOPAUSAL
     Dosage: UNK UNK, UNKNOWN
     Route: 065
     Dates: start: 20111107
  2. FORTEO [Suspect]
     Dosage: UNK UNK, UNKNOWN
     Route: 065

REACTIONS (10)
  - FALL [None]
  - CARDIAC PACEMAKER INSERTION [None]
  - HYPOTENSION [None]
  - LOSS OF CONSCIOUSNESS [None]
  - PRESYNCOPE [None]
  - DRUG DOSE OMISSION [None]
  - ATRIOVENTRICULAR BLOCK [None]
  - SURGERY [None]
  - ASTHENIA [None]
  - HEART RATE DECREASED [None]
